FAERS Safety Report 6020606-6 (Version None)
Quarter: 2008Q4

REPORT INFORMATION
  Report Type: 
  Country: None (occurrence: None)
  Receive Date: 20081227
  Receipt Date: 20081215
  Transmission Date: 20090506
  Serious: Yes (Hospitalization)
  Sender: FDA-Public Use
  Company Number: JP-SANOFI-SYNTHELABO-A01200816360

PATIENT
  Sex: Male
  Weight: 63 kg

DRUGS (18)
  1. SELBEX [Concomitant]
     Indication: GASTRITIS PROPHYLAXIS
     Dosage: 50 MG
     Route: 048
     Dates: start: 20081112
  2. DEPAS [Concomitant]
     Indication: INSOMNIA
     Dosage: 0.5 MG
     Route: 048
     Dates: start: 20081112
  3. BENZALIN [Concomitant]
     Indication: INSOMNIA
     Dosage: 5 MG
     Route: 048
     Dates: start: 20081112
  4. HACHIAZULE [Concomitant]
     Indication: STOMATITIS
     Dosage: 2 G
     Route: 048
     Dates: start: 20081029
  5. NU-LOTAN [Concomitant]
     Indication: HYPERTENSION
     Dosage: 50 MG
     Route: 048
     Dates: start: 20081015
  6. GASTER D [Concomitant]
     Route: 048
     Dates: start: 20080922
  7. NORVASC [Concomitant]
     Indication: HYPERTENSION
     Dosage: 2.5-5 MG
     Route: 048
     Dates: start: 20080917
  8. AMOBAN [Concomitant]
     Route: 048
     Dates: start: 20080822, end: 20080902
  9. DECADRON [Suspect]
     Indication: PREMEDICATION
     Dosage: 2 MG
     Route: 048
     Dates: start: 20080917, end: 20081213
  10. MAGNESIUM SULFATE [Suspect]
     Indication: PREMEDICATION
     Dosage: 8 ML
     Route: 041
     Dates: start: 20080902, end: 20081209
  11. CALCICOL [Suspect]
     Indication: PREMEDICATION
     Dosage: 12 ML
     Route: 041
     Dates: start: 20080902, end: 20081209
  12. DECADRON [Suspect]
     Dosage: 8 ML
     Route: 041
     Dates: start: 20080902, end: 20081209
  13. KYTRIL [Suspect]
     Indication: PREMEDICATION
     Dosage: 3 ML
     Route: 041
     Dates: start: 20080902, end: 20081209
  14. NASEA [Suspect]
     Indication: PREMEDICATION
     Dosage: 0.2 MG
     Route: 048
     Dates: start: 20080902, end: 20081209
  15. FLUOROURACIL [Suspect]
     Indication: COLON CANCER
     Dosage: 400 MG/M2 BOLUS FOLLOWED BY 2400 MG/M2 INFUSION
     Route: 041
     Dates: start: 20081125, end: 20081125
  16. ISOVORIN [Suspect]
     Indication: COLON CANCER
     Dosage: 200 MG/M2
     Route: 041
     Dates: start: 20081125, end: 20081125
  17. AZD2171 (CEDIRINIB) [Suspect]
     Indication: COLON CANCER
     Dosage: UNK
     Route: 048
     Dates: start: 20080902
  18. ELPLAT [Suspect]
     Indication: COLON CANCER
     Dates: start: 20081125, end: 20081125

REACTIONS (1)
  - ANGINA PECTORIS [None]
